FAERS Safety Report 10474548 (Version 2)
Quarter: 2014Q3

REPORT INFORMATION
  Report Type: Report from Study
  Country: US (occurrence: US)
  Receive Date: 20140924
  Receipt Date: 20140924
  Transmission Date: 20150326
  Serious: Yes (Other)
  Sender: FDA-Public Use
  Company Number: US-ALEXION PHARMACEUTICALS INC-A200700288

PATIENT
  Age: 51 Year
  Sex: Female

DRUGS (1)
  1. SOLIRIS [Suspect]
     Active Substance: ECULIZUMAB
     Indication: PAROXYSMAL NOCTURNAL HAEMOGLOBINURIA
     Dosage: UNK
     Route: 042

REACTIONS (18)
  - Back pain [Unknown]
  - Oropharyngeal pain [Unknown]
  - Chills [Unknown]
  - Chromaturia [Unknown]
  - Anxiety [Unknown]
  - Pyrexia [Unknown]
  - Dysphagia [Unknown]
  - White blood cell count decreased [Unknown]
  - Dyspnoea [Unknown]
  - Basedow^s disease [Unknown]
  - Alopecia [Unknown]
  - Tremor [Unknown]
  - Fatigue [Unknown]
  - Arthralgia [Unknown]
  - Drug hypersensitivity [Unknown]
  - Headache [Unknown]
  - Palpitations [Unknown]
  - Depression [Unknown]

NARRATIVE: CASE EVENT DATE: 200711
